FAERS Safety Report 4589202-1 (Version None)
Quarter: 2005Q1

REPORT INFORMATION
  Report Type: 
  Country: None (occurrence: None)
  Receive Date: 20050223
  Receipt Date: 20050106
  Transmission Date: 20050727
  Serious: Yes (Death, Life-Threatening, Hospitalization, Other)
  Sender: FDA-Public Use
  Company Number: NSADSS2002031900

PATIENT
  Sex: Female
  Weight: 78 kg

DRUGS (20)
  1. REMICADE [Suspect]
     Route: 041
  2. REMICADE [Suspect]
     Route: 041
  3. REMICADE [Suspect]
     Route: 041
  4. REMICADE [Suspect]
     Route: 041
  5. REMICADE [Suspect]
     Route: 041
  6. REMICADE [Suspect]
     Route: 041
  7. REMICADE [Suspect]
     Indication: RHEUMATOID ARTHRITIS
     Route: 041
  8. METHOTREXATE [Concomitant]
     Dates: start: 20020718
  9. LANSOPRAZOLE [Concomitant]
  10. FERROUS SULFATE TAB [Concomitant]
  11. METOCLOPRAMIDE [Concomitant]
  12. PREDNISOLONE [Concomitant]
  13. BISOPROLOL [Concomitant]
  14. WARFARIN SODIUM [Concomitant]
  15. BENDROFLUAZIDE [Concomitant]
  16. BENDROFLUAZIDE [Concomitant]
  17. FOLIC ACID [Concomitant]
  18. NAPROXEN [Concomitant]
  19. LISINOPRIL [Concomitant]
  20. ADALAT [Concomitant]

REACTIONS (8)
  - ANAEMIA [None]
  - BACTERIAL INFECTION [None]
  - DECUBITUS ULCER [None]
  - DEHYDRATION [None]
  - FALL [None]
  - HEPATIC CANCER METASTATIC [None]
  - LIVER FUNCTION TEST ABNORMAL [None]
  - SEPSIS [None]
